FAERS Safety Report 7756463-7 (Version None)
Quarter: 2011Q3

REPORT INFORMATION
  Report Type: 
  Country: None (occurrence: None)
  Receive Date: 20110916
  Receipt Date: 20110915
  Transmission Date: 20111222
  Serious: Yes (Other)
  Sender: FDA-Public Use
  Company Number: IT-SANOFI-AVENTIS-2011SA058086

PATIENT
  Sex: Female

DRUGS (2)
  1. CIPROFLOXACIN [Concomitant]
     Indication: URINARY TRACT INFECTION
  2. MULTAQ [Suspect]
     Route: 048

REACTIONS (3)
  - VOMITING [None]
  - NAUSEA [None]
  - RENAL FAILURE ACUTE [None]
